FAERS Safety Report 18831953 (Version 3)
Quarter: 2021Q1

REPORT INFORMATION
  Report Type: Spontaneous
  Country: US (occurrence: US)
  Receive Date: 20210203
  Receipt Date: 20210218
  Transmission Date: 20210419
  Serious: Yes (Hospitalization, Other)
  Sender: FDA-Public Use
  Company Number: US-PFIZER INC-2020270022

PATIENT
  Age: 88 Year
  Sex: Female
  Weight: 60.33 kg

DRUGS (1)
  1. LYRICA [Suspect]
     Active Substance: PREGABALIN
     Indication: DIABETIC NEUROPATHY
     Dosage: 300 MG, 2X/DAY (ONE IN MORNING AND ONE AT NIGHT)

REACTIONS (6)
  - Cardiac failure [Unknown]
  - Visual impairment [Unknown]
  - Memory impairment [Unknown]
  - Loss of consciousness [Unknown]
  - Off label use [Unknown]
  - Product use issue [Unknown]

NARRATIVE: CASE EVENT DATE: 2020
